FAERS Safety Report 7718844-7 (Version None)
Quarter: 2011Q3

REPORT INFORMATION
  Report Type: 
  Country: None (occurrence: None)
  Receive Date: 20110830
  Receipt Date: 20110819
  Transmission Date: 20111222
  Serious: Yes (Hospitalization)
  Sender: FDA-Public Use
  Company Number: US-BAYER-2011-028543

PATIENT
  Age: 38 Year
  Sex: Female
  Weight: 106.12 kg

DRUGS (4)
  1. YASMIN [Suspect]
     Dosage: UNK
     Dates: start: 20050901, end: 20050101
  2. ZOLOFT [Concomitant]
     Indication: DEPRESSION
     Dosage: 100 MG, UNK
     Dates: start: 20000101
  3. YASMIN [Suspect]
     Dosage: UNK
     Dates: start: 20050801, end: 20050101
  4. WELLBUTRIN [Concomitant]
     Indication: DEPRESSION
     Dosage: 300 MG, UNK
     Dates: start: 20000101

REACTIONS (4)
  - BACK PAIN [None]
  - CHEST PAIN [None]
  - PULMONARY EMBOLISM [None]
  - INJURY [None]
